FAERS Safety Report 13837986 (Version 6)
Quarter: 2020Q2

REPORT INFORMATION
  Report Type: Report from Study
  Country: None (occurrence: US)
  Receive Date: 20170807
  Receipt Date: 20200505
  Transmission Date: 20200713
  Serious: Yes (Hospitalization, Other)
  Sender: FDA-Public Use
  Company Number: US-ABBVIE-17K-163-1957815-00

PATIENT
  Sex: Female

DRUGS (2)
  1. HUMIRA [Suspect]
     Active Substance: ADALIMUMAB
     Indication: RHEUMATOID ARTHRITIS
     Route: 058
     Dates: start: 2016, end: 20170417
  2. HUMIRA [Suspect]
     Active Substance: ADALIMUMAB
     Route: 058
     Dates: start: 20200426

REACTIONS (19)
  - Fatigue [Not Recovered/Not Resolved]
  - Malaise [Not Recovered/Not Resolved]
  - Haematological malignancy [Not Recovered/Not Resolved]
  - Renal cancer [Recovering/Resolving]
  - Neoplasm malignant [Unknown]
  - Computerised tomogram liver abnormal [Unknown]
  - Weight fluctuation [Unknown]
  - General physical health deterioration [Unknown]
  - Thyroid cancer [Not Recovered/Not Resolved]
  - Carpal tunnel syndrome [Recovered/Resolved]
  - Macular degeneration [Not Recovered/Not Resolved]
  - Soft tissue disorder [Unknown]
  - Hysterectomy [Unknown]
  - Rheumatoid arthritis [Not Recovered/Not Resolved]
  - Post procedural haemorrhage [Not Recovered/Not Resolved]
  - Breast cancer [Recovered/Resolved]
  - Pain [Recovered/Resolved]
  - Pernicious anaemia [Recovering/Resolving]
  - Mobility decreased [Recovered/Resolved]

NARRATIVE: CASE EVENT DATE: 2016
